FAERS Safety Report 8464837-4 (Version None)
Quarter: 2012Q2

REPORT INFORMATION
  Report Type: 
  Country: None (occurrence: None)
  Receive Date: 20120618
  Receipt Date: 20120614
  Transmission Date: 20120825
  Serious: Yes (Hospitalization, Other)
  Sender: FDA-Public Use
  Company Number: ADR-2010-9543

PATIENT
  Age: 53 Year
  Sex: Male

DRUGS (1)
  1. BACLOFEN [Suspect]
     Indication: MUSCLE SPASTICITY
     Dosage: MCG, DAILY, INTRATH
     Route: 037

REACTIONS (2)
  - CEREBRAL HAEMORRHAGE [None]
  - FEMUR FRACTURE [None]
